FAERS Safety Report 9372428 (Version 1)
Quarter: 2013Q2

REPORT INFORMATION
  Report Type: Report from Study
  Country: US (occurrence: US)
  Receive Date: 20130627
  Receipt Date: 20130627
  Transmission Date: 20140414
  Serious: Yes (Death)
  Sender: FDA-Public Use
  Company Number: US-MYLANLABS-2012S1023526

PATIENT
  Age: 51 Year
  Sex: Male

DRUGS (6)
  1. CLOZAPINE TABLETS [Suspect]
     Indication: SCHIZOPHRENIA
     Route: 048
     Dates: end: 201208
  2. RISPERIDONE [Concomitant]
  3. DIVALPROEX [Concomitant]
  4. LEVOTHYROXINE [Concomitant]
  5. LORAZEPAM [Concomitant]
  6. BENZTROPINE [Concomitant]

REACTIONS (1)
  - Lung neoplasm malignant [Fatal]
